FAERS Safety Report 9685306 (Version 2)
Quarter: 2014Q1

REPORT INFORMATION
  Report Type: Report from Study
  Country: KR (occurrence: KR)
  Receive Date: 20131113
  Receipt Date: 20140317
  Transmission Date: 20141002
  Serious: Yes (Hospitalization)
  Sender: FDA-Public Use
  Company Number: KR-JNJFOC-20131101429

PATIENT
  Age: 13 Year
  Sex: Male
  Weight: 36.4 kg

DRUGS (6)
  1. REMICADE [Suspect]
     Indication: COLITIS ULCERATIVE
     Route: 042
     Dates: start: 20131022, end: 20131022
  2. BOLGRE [Concomitant]
     Indication: MINERAL SUPPLEMENTATION
     Route: 048
     Dates: start: 20131001
  3. PHENIRAMINE [Concomitant]
     Indication: ANTIALLERGIC THERAPY
     Route: 042
     Dates: start: 20131022, end: 20131022
  4. DEXTROSE 5 % [Concomitant]
     Indication: PROPHYLAXIS
     Route: 065
     Dates: start: 20131031, end: 20131103
  5. RHINATHIOL (CARBOCISTEINE) [Concomitant]
     Indication: RHINITIS ALLERGIC
     Route: 048
     Dates: start: 20131103
  6. MUCOPECT [Concomitant]
     Indication: RHINITIS ALLERGIC
     Route: 042
     Dates: start: 20131102, end: 20131103

REACTIONS (3)
  - Gastroenteritis bacterial [Recovered/Resolved]
  - Pancreatitis acute [Recovered/Resolved]
  - Rhinitis allergic [Not Recovered/Not Resolved]
